FAERS Safety Report 6118603-5 (Version None)
Quarter: 2009Q1

REPORT INFORMATION
  Report Type: 
  Country: None (occurrence: None)
  Receive Date: 20090314
  Receipt Date: 20090223
  Transmission Date: 20090719
  Serious: Yes (Hospitalization)
  Sender: FDA-Public Use
  Company Number: US-ABBOTT-09P-163-0558897-00

PATIENT
  Sex: Male
  Weight: 68.1 kg

DRUGS (10)
  1. HUMIRA [Suspect]
     Indication: CROHN'S DISEASE
     Route: 058
     Dates: start: 20070901, end: 20081201
  2. HUMIRA [Suspect]
     Indication: CROHN'S DISEASE
     Route: 058
     Dates: start: 20090101
  3. ASOCOL [Concomitant]
     Indication: CROHN'S DISEASE
     Route: 048
  4. FLAGYL [Concomitant]
     Indication: CROHN'S DISEASE
     Route: 048
  5. CIPROFLOXACIN HCL [Concomitant]
     Indication: CROHN'S DISEASE
     Route: 048
  6. LOMOTIL [Concomitant]
     Indication: CROHN'S DISEASE
     Dosage: .05/5 MG X 3 DAILY
     Route: 048
  7. VITAMIN B-12 [Concomitant]
     Indication: SHORT-BOWEL SYNDROME
     Route: 050
  8. MULTI-VITAMINS [Concomitant]
     Indication: ANAEMIA
  9. CALCIUM [Concomitant]
     Indication: MEDICAL DIET
     Dosage: N
     Route: 048
  10. MULTI-VITAMIN [Concomitant]
     Indication: MEDICAL DIET
     Route: 048

REACTIONS (4)
  - CROHN'S DISEASE [None]
  - INJECTION SITE ERYTHEMA [None]
  - INJECTION SITE PRURITUS [None]
  - INJECTION SITE SWELLING [None]
